FAERS Safety Report 5489739-7 (Version None)
Quarter: 2007Q4

REPORT INFORMATION
  Report Type: 
  Country: None (occurrence: None)
  Receive Date: 20071018
  Receipt Date: 20071010
  Transmission Date: 20080405
  Serious: Yes (Hospitalization)
  Sender: FDA-Public Use
  Company Number: CA-ASTRAZENECA-2007UW23632

PATIENT
  Age: 59 Year
  Sex: Female

DRUGS (6)
  1. NEXIUM [Suspect]
     Indication: NAUSEA
     Route: 048
     Dates: start: 20020101, end: 20050101
  2. NEXIUM [Suspect]
     Route: 048
     Dates: start: 20050101
  3. ELTROXIN [Concomitant]
  4. ADALAT CC [Concomitant]
  5. CYCLOSPORINE [Concomitant]
  6. AMITRIPTYLINE HCL [Concomitant]
     Dosage: 10-25 MG

REACTIONS (5)
  - CARDIAC DISORDER [None]
  - DECREASED ACTIVITY [None]
  - DYSPNOEA [None]
  - PALPITATIONS [None]
  - YAWNING [None]
